FAERS Safety Report 7412868-5 (Version None)
Quarter: 2011Q2

REPORT INFORMATION
  Report Type: 
  Country: None (occurrence: None)
  Receive Date: 20110413
  Receipt Date: 20110411
  Transmission Date: 20111010
  Serious: Yes (Death, Hospitalization)
  Sender: FDA-Public Use
  Company Number: B0712364A

PATIENT
  Age: 47 Year
  Sex: Male

DRUGS (1)
  1. AVANDIA [Suspect]
     Indication: DIABETES MELLITUS
     Route: 048
     Dates: start: 20000101, end: 20070101

REACTIONS (4)
  - STENT PLACEMENT [None]
  - CARDIAC FAILURE CONGESTIVE [None]
  - VASCULAR GRAFT [None]
  - ARTERIOSCLEROSIS [None]
